FAERS Safety Report 6258488-X (Version None)
Quarter: 2009Q3

REPORT INFORMATION
  Report Type: 
  Country: None (occurrence: None)
  Receive Date: 20090702
  Receipt Date: 20090623
  Transmission Date: 20100115
  Serious: Yes (Death)
  Sender: FDA-Public Use
  Company Number: 307832

PATIENT
  Age: 68 Year
  Sex: Female

DRUGS (4)
  1. DACARBAZINE [Suspect]
     Indication: HODGKIN'S DISEASE
  2. DOXORUBICIN HCL [Suspect]
     Indication: HODGKIN'S DISEASE
  3. (VINBLASTINE) [Suspect]
     Indication: HODGKIN'S DISEASE
  4. (THERAPEUTIC RADIOPHARMACEUTICALS) [Suspect]
     Indication: HODGKIN'S DISEASE

REACTIONS (2)
  - ACUTE MYELOID LEUKAEMIA [None]
  - LEUKAEMIA RECURRENT [None]
